FAERS Safety Report 17832048 (Version 1)
Quarter: 2020Q2

REPORT INFORMATION
  Report Type: Spontaneous
  Country: US (occurrence: US)
  Receive Date: 20200528
  Receipt Date: 20200528
  Transmission Date: 20200714
  Serious: No
  Sender: FDA-Public Use
  Company Number: US-ROCHE-2567074

PATIENT
  Age: 35 Year
  Sex: Female

DRUGS (3)
  1. ELEZANUMAB. [Concomitant]
     Active Substance: ELEZANUMAB
     Indication: MULTIPLE SCLEROSIS
  2. OCREVUS [Suspect]
     Active Substance: OCRELIZUMAB
     Indication: MULTIPLE SCLEROSIS
     Route: 042
     Dates: start: 20181128
  3. INFLUENZA VACCINE [Concomitant]
     Active Substance: INFLUENZA VIRUS VACCINE
     Indication: ANTIVIRAL PROPHYLAXIS
     Route: 065
     Dates: start: 20200311, end: 20200311

REACTIONS (4)
  - Influenza [Unknown]
  - Muscle spasticity [Not Recovered/Not Resolved]
  - Nasopharyngitis [Unknown]
  - Hand deformity [Unknown]

NARRATIVE: CASE EVENT DATE: 202002
